FAERS Safety Report 18342560 (Version 1)
Quarter: 2020Q4

REPORT INFORMATION
  Report Type: Report from Study
  Country: US (occurrence: US)
  Receive Date: 20201005
  Receipt Date: 20201005
  Transmission Date: 20210113
  Serious: Yes (Hospitalization, Other)
  Sender: FDA-Public Use
  Company Number: US-GILEAD-2020-0497223

PATIENT
  Age: 56 Year
  Sex: Female

DRUGS (31)
  1. TRAMADOL HCL [Concomitant]
     Active Substance: TRAMADOL HYDROCHLORIDE
  2. VITAMIN D3 [Concomitant]
     Active Substance: CHOLECALCIFEROL
  3. BETHKIS [Concomitant]
     Active Substance: TOBRAMYCIN
  4. CALCIUM CITRATE + D3 [Concomitant]
  5. GUAIFENESIN. [Concomitant]
     Active Substance: GUAIFENESIN
  6. FAMOTIDINE. [Concomitant]
     Active Substance: FAMOTIDINE
  7. SEROQUEL [Concomitant]
     Active Substance: QUETIAPINE FUMARATE
  8. AZTREONAM LYSINE [Suspect]
     Active Substance: AZTREONAM LYSINE
     Indication: CYSTIC FIBROSIS
     Dosage: 1 VIAL, TID, FOR 28 DAYS ON AND 28 DAYS OFF
     Route: 055
     Dates: start: 20131227
  9. BENZONATATE. [Concomitant]
     Active Substance: BENZONATATE
  10. KALYDECO [Concomitant]
     Active Substance: IVACAFTOR
  11. PANCREAZE [Concomitant]
     Active Substance: PANCRELIPASE AMYLASE\PANCRELIPASE LIPASE\PANCRELIPASE PROTEASE
  12. PANTOPRAZOLE [Concomitant]
     Active Substance: PANTOPRAZOLE
  13. ZOLOFT [Concomitant]
     Active Substance: SERTRALINE HYDROCHLORIDE
  14. AZITHROMYCIN ANHYDROUS. [Concomitant]
     Active Substance: AZITHROMYCIN ANHYDROUS
  15. ELIQUIS [Concomitant]
     Active Substance: APIXABAN
  16. MELATONIN [Concomitant]
     Active Substance: MELATONIN
  17. PROMETHAZINE [Concomitant]
     Active Substance: PROMETHAZINE HYDROCHLORIDE
  18. XIFAXAN [Concomitant]
     Active Substance: RIFAXIMIN
  19. BENTYL [Concomitant]
     Active Substance: DICYCLOMINE HYDROCHLORIDE
  20. LORATADINE. [Concomitant]
     Active Substance: LORATADINE
  21. SALINE [SODIUM CHLORIDE] [Concomitant]
     Active Substance: SODIUM CHLORIDE
  22. SERTRALINE [Concomitant]
     Active Substance: SERTRALINE HYDROCHLORIDE
  23. SODIUM CHLORIDE. [Concomitant]
     Active Substance: SODIUM CHLORIDE
  24. TOPAMAX [Concomitant]
     Active Substance: TOPIRAMATE
  25. FLONASE [Concomitant]
     Active Substance: FLUTICASONE PROPIONATE
  26. LEVOFLOXACIN. [Concomitant]
     Active Substance: LEVOFLOXACIN
  27. ADVAIR HFA [Concomitant]
     Active Substance: FLUTICASONE PROPIONATE\SALMETEROL XINAFOATE
  28. CARAFATE [Concomitant]
     Active Substance: SUCRALFATE
  29. CYCLOBENZAPRINE. [Concomitant]
     Active Substance: CYCLOBENZAPRINE
  30. MUCINEX [Concomitant]
     Active Substance: GUAIFENESIN
  31. URSODIOL. [Concomitant]
     Active Substance: URSODIOL

REACTIONS (1)
  - Pneumonia [Unknown]

NARRATIVE: CASE EVENT DATE: 20200911
